FAERS Safety Report 13336995 (Version 3)
Quarter: 2017Q1

REPORT INFORMATION
  Report Type: Spontaneous
  Country: US (occurrence: US)
  Receive Date: 20170314
  Receipt Date: 20170328
  Transmission Date: 20170428
  Serious: Yes (Death, Hospitalization)
  Sender: FDA-Public Use
  Company Number: US-BEH-2017078772

PATIENT
  Age: 81 Year
  Sex: Female

DRUGS (4)
  1. ANALGESIC                          /00509701/ [Concomitant]
     Indication: PAIN
  2. CARIMUNE NF [Suspect]
     Active Substance: HUMAN IMMUNOGLOBULIN G
     Dosage: 30 G, UNK
     Route: 042
     Dates: start: 20161020
  3. CARIMUNE NF [Suspect]
     Active Substance: HUMAN IMMUNOGLOBULIN G
     Indication: MYASTHENIA GRAVIS
     Dosage: 30 G, OD
     Route: 042
     Dates: start: 20161018
  4. CARIMUNE NF [Suspect]
     Active Substance: HUMAN IMMUNOGLOBULIN G
     Dosage: 30 G, OD
     Route: 042
     Dates: start: 20161019

REACTIONS (3)
  - Chronic obstructive pulmonary disease [Unknown]
  - Acute kidney injury [Fatal]
  - Lethargy [Unknown]

NARRATIVE: CASE EVENT DATE: 20161021
